FAERS Safety Report 5126196-4 (Version None)
Quarter: 2006Q4

REPORT INFORMATION
  Report Type: 
  Country: None (occurrence: None)
  Receive Date: 20061012
  Receipt Date: 20061009
  Transmission Date: 20070319
  Serious: Yes (Hospitalization)
  Sender: FDA-Public Use
  Company Number: US-ROXANE LABORATORIES, INC-2006-BP-11755RO

PATIENT
  Sex: Male

DRUGS (1)
  1. METHADONE HCL ORAL SOLUTION USP, 5 MG/5 ML [Suspect]
     Indication: PAIN
     Dosage: 0.75 MG X 1 DOSE (IV ROUTE)
     Route: 042
     Dates: start: 20061009, end: 20061009

REACTIONS (1)
  - INCORRECT ROUTE OF DRUG ADMINISTRATION [None]
